FAERS Safety Report 16939241 (Version 1)
Quarter: 2019Q4

REPORT INFORMATION
  Report Type: Spontaneous
  Country: DE (occurrence: DE)
  Receive Date: 20191021
  Receipt Date: 20191021
  Transmission Date: 20200122
  Serious: Yes (Congenital Anomaly, Other)
  Sender: FDA-Public Use
  Company Number: DE-HETERO-HET2019DE01466

PATIENT

DRUGS (2)
  1. LAMOTRIGINE. [Concomitant]
     Active Substance: LAMOTRIGINE
     Indication: EPILEPSY
     Route: 064
  2. LEVETIRACETAM. [Suspect]
     Active Substance: LEVETIRACETAM
     Indication: EPILEPSY
     Dosage: 2000 MG, QD
     Route: 064

REACTIONS (2)
  - Developmental hip dysplasia [Unknown]
  - Foetal exposure during pregnancy [Recovered/Resolved]
